FAERS Safety Report 20628401 (Version 2)
Quarter: 2022Q2

REPORT INFORMATION
  Report Type: Spontaneous
  Country: JP (occurrence: JP)
  Receive Date: 20220323
  Receipt Date: 20220609
  Transmission Date: 20220721
  Serious: Yes (Hospitalization, Other)
  Sender: FDA-Public Use
  Company Number: JP-MSD-M2022-11092

PATIENT
  Age: 6 Decade
  Sex: Female

DRUGS (7)
  1. KEYTRUDA [Suspect]
     Active Substance: PEMBROLIZUMAB
     Indication: Triple negative breast cancer
     Dosage: 200 MILLIGRAM, Q3W
     Route: 041
     Dates: start: 20220215, end: 20220308
  2. CARBOPLATIN [Concomitant]
     Active Substance: CARBOPLATIN
     Indication: Triple negative breast cancer
     Dosage: AUC2
     Route: 041
     Dates: start: 20220215, end: 20220215
  3. CARBOPLATIN [Concomitant]
     Active Substance: CARBOPLATIN
     Dosage: REDUCTION FOR PHASE 1
     Route: 041
     Dates: start: 20220222, end: 20220222
  4. CARBOPLATIN [Concomitant]
     Active Substance: CARBOPLATIN
     Dosage: REDUCTION FOR PHASE 2
     Route: 041
     Dates: start: 20220308, end: 20220308
  5. GEMCITABINE HYDROCHLORIDE [Concomitant]
     Active Substance: GEMCITABINE HYDROCHLORIDE
     Indication: Triple negative breast cancer
     Dosage: 1000 MILLIGRAM, QW
     Route: 041
     Dates: start: 20220215, end: 20220215
  6. GEMCITABINE HYDROCHLORIDE [Concomitant]
     Active Substance: GEMCITABINE HYDROCHLORIDE
     Dosage: REDUCTION FOR PHASE 1
     Route: 041
     Dates: start: 20220222, end: 20220222
  7. GEMCITABINE HYDROCHLORIDE [Concomitant]
     Active Substance: GEMCITABINE HYDROCHLORIDE
     Dosage: REDUCTION FOR PHASE 2
     Route: 041
     Dates: start: 20220308, end: 20220308

REACTIONS (4)
  - Eastern Cooperative Oncology Group performance status worsened [Unknown]
  - Hepatitis [Unknown]
  - Interstitial lung disease [Recovered/Resolved]
  - Malignant neoplasm progression [Unknown]

NARRATIVE: CASE EVENT DATE: 20220101
